FAERS Safety Report 10191283 (Version 1)
Quarter: 2014Q2

REPORT INFORMATION
  Report Type: Spontaneous
  Country: US (occurrence: US)
  Receive Date: 20140523
  Receipt Date: 20140523
  Transmission Date: 20141212
  Serious: Yes (Hospitalization)
  Sender: FDA-Public Use
  Company Number: US-BAYER-2014-074524

PATIENT
  Age: 28 Year
  Sex: Female

DRUGS (11)
  1. YAZ [Suspect]
  2. GIANVI [Suspect]
  3. EFFEXOR [Concomitant]
     Dosage: UNK
     Dates: start: 20110314
  4. IBUPROFEN [Concomitant]
     Dosage: UNK
     Dates: start: 20110314
  5. TRIAMCINOLONE [Concomitant]
     Dosage: UNK
     Dates: start: 20110314
  6. FLONASE [Concomitant]
     Dosage: UNK
     Dates: start: 20110314
  7. BACTRIM [Concomitant]
  8. CLOBETASOL [Concomitant]
  9. CELEXA [Concomitant]
  10. TRAMADOL [Concomitant]
     Indication: PAIN
  11. VICODIN [Concomitant]

REACTIONS (1)
  - Pulmonary embolism [None]
